FAERS Safety Report 7105734-6 (Version None)
Quarter: 2010Q4

REPORT INFORMATION
  Report Type: 
  Country: None (occurrence: None)
  Receive Date: 20101116
  Receipt Date: 20101108
  Transmission Date: 20110411
  Serious: Yes (Other)
  Sender: FDA-Public Use
  Company Number: PHHY2010DE76765

PATIENT
  Sex: Male

DRUGS (1)
  1. SANDIMMUNE [Suspect]
     Indication: BONE MARROW TRANSPLANT
     Route: 048

REACTIONS (5)
  - BLOOD CREATININE INCREASED [None]
  - CORNEAL TRANSPLANT [None]
  - KERATORHEXIS [None]
  - RENAL IMPAIRMENT [None]
  - SKIN DISORDER [None]
